FAERS Safety Report 10095461 (Version 2)
Quarter: 2014Q2

REPORT INFORMATION
  Report Type: Report from Study
  Country: US (occurrence: US)
  Receive Date: 20140422
  Receipt Date: 20140422
  Transmission Date: 20141212
  Serious: Yes (Hospitalization, Other)
  Sender: FDA-Public Use
  Company Number: US-BAYER-2013-150908

PATIENT
  Age: 81 Year
  Sex: Female

DRUGS (5)
  1. STIVARGA [Suspect]
     Indication: COLORECTAL CANCER
     Dosage: 120 MG, QD
     Route: 048
     Dates: start: 201311
  2. STIVARGA [Suspect]
     Indication: COLORECTAL CANCER
     Dosage: 160 MG, QD
     Route: 048
     Dates: start: 201311
  3. STIVARGA [Suspect]
     Indication: COLORECTAL CANCER
     Dosage: DAILY DOSE 160 MG
     Route: 048
     Dates: start: 20131203
  4. STIVARGA [Suspect]
     Indication: COLORECTAL CANCER
     Dosage: 160 MG, QD
     Route: 048
     Dates: start: 201312, end: 201401
  5. STIVARGA [Suspect]
     Indication: COLORECTAL CANCER
     Dosage: 120MG, DAILY
     Route: 048

REACTIONS (17)
  - Haemoptysis [None]
  - Blood pressure increased [None]
  - Pain [None]
  - Oropharyngeal pain [None]
  - Epistaxis [None]
  - Dizziness [None]
  - Fall [None]
  - Pruritus [None]
  - Rash [None]
  - Diarrhoea [None]
  - Pneumonia [None]
  - Fatigue [None]
  - Haemoptysis [None]
  - Epistaxis [None]
  - Stoma site haemorrhage [None]
  - Hypoaesthesia [None]
  - Paraesthesia [None]
